FAERS Safety Report 5087782-3 (Version None)
Quarter: 2006Q3

REPORT INFORMATION
  Report Type: 
  Country: None (occurrence: None)
  Receive Date: 20060821
  Receipt Date: 20060821
  Transmission Date: 20061208
  Serious: Yes (Hospitalization)
  Sender: FDA-Public Use
  Company Number: None

PATIENT
  Age: 69 Year
  Sex: Male
  Weight: 70.3075 kg

DRUGS (17)
  1. VINCRISTINE [Suspect]
     Indication: HODGKIN'S DISEASE
     Dosage: 2 MG   CYCLED     IV
     Route: 042
     Dates: start: 20060307, end: 20060818
  2. NITROGEN MUSTARD    10MG [Suspect]
     Indication: HODGKIN'S DISEASE
     Dosage: 10 MG    CYCLED    IV
     Route: 042
     Dates: start: 20060307, end: 20060818
  3. LISINOPRIL [Concomitant]
  4. WARFARIN SODIUM [Concomitant]
  5. DIGOXIN [Concomitant]
  6. POTASSIUM CHLORIDE [Concomitant]
  7. SIMVASTATIN [Concomitant]
  8. PREDNISONE TAB [Concomitant]
  9. PROCARBAZINE [Concomitant]
  10. DARBEPOETIN ALFA [Concomitant]
  11. FERROUS SULFATE TAB [Concomitant]
  12. ALPRAZOLAM [Concomitant]
  13. DOCUSATE NA [Concomitant]
  14. MEGESTROL ACETATE [Concomitant]
  15. GLYBURIDE [Concomitant]
  16. INSULIN [Concomitant]
  17. ONDANSETRON HCL [Concomitant]

REACTIONS (2)
  - ASTHENIA [None]
  - HYPOAESTHESIA [None]
